FAERS Safety Report 7952875-7 (Version None)
Quarter: 2011Q4

REPORT INFORMATION
  Report Type: 
  Country: None (occurrence: None)
  Receive Date: 20111201
  Receipt Date: 20111122
  Transmission Date: 20120403
  Serious: Yes (Hospitalization)
  Sender: FDA-Public Use
  Company Number: US-BAYER-2011-002634

PATIENT
  Age: 31 Year
  Sex: Female
  Weight: 58 kg

DRUGS (17)
  1. MOTRIN [Concomitant]
     Route: 048
  2. TORADOL [Concomitant]
     Dosage: 30 MG, UNK
  3. KLONOPIN [Concomitant]
     Route: 048
  4. PHENERGAN [Concomitant]
     Dosage: 25 MG, UNK
  5. AMERGE [Concomitant]
     Dosage: 1.25 MG, TID
     Dates: start: 20080927
  6. YAZ [Suspect]
     Indication: PREMENSTRUAL SYNDROME
  7. YAZ [Suspect]
     Indication: MENSTRUAL CYCLE MANAGEMENT
  8. TOPAMAX [Concomitant]
     Dosage: 25 MG, UNK
     Route: 048
     Dates: start: 20080825
  9. PRILOSEC [Concomitant]
     Route: 048
  10. YAZ [Suspect]
     Indication: CONTRACEPTION
     Dosage: UNK
     Route: 048
     Dates: start: 20080131, end: 20081003
  11. LOMOTIL [Concomitant]
     Route: 048
  12. SEROQUEL [Concomitant]
     Route: 048
  13. PERCOCET [Concomitant]
  14. PROZAC [Concomitant]
     Route: 048
  15. IMITREX [Concomitant]
     Route: 048
  16. CHANTIX [Concomitant]
  17. MEDROL [Concomitant]
     Dosage: UNK
     Route: 048
     Dates: start: 20080901

REACTIONS (6)
  - FEAR [None]
  - TRANSVERSE SINUS THROMBOSIS [None]
  - PAIN [None]
  - INTRACRANIAL VENOUS SINUS THROMBOSIS [None]
  - SUPERIOR SAGITTAL SINUS THROMBOSIS [None]
  - JUGULAR VEIN THROMBOSIS [None]
